FAERS Safety Report 6209464-4 (Version None)
Quarter: 2009Q2

REPORT INFORMATION
  Report Type: 
  Country: None (occurrence: None)
  Receive Date: 20090601
  Receipt Date: 20090105
  Transmission Date: 20091009
  Serious: No
  Sender: FDA-Public Use
  Company Number: A0762566A

PATIENT
  Age: 46 Year
  Sex: Male

DRUGS (1)
  1. AUGMENTIN '125' [Suspect]

REACTIONS (1)
  - DIARRHOEA [None]
